FAERS Safety Report 20898796 (Version 2)
Quarter: 2023Q4

REPORT INFORMATION
  Report Type: Spontaneous
  Country: US (occurrence: US)
  Receive Date: 20220601
  Receipt Date: 20231113
  Transmission Date: 20240110
  Serious: Yes (Hospitalization, Other)
  Sender: FDA-Public Use
  Company Number: US-BoehringerIngelheim-2022-BI-172804

PATIENT
  Age: 72 Year
  Sex: Female

DRUGS (1)
  1. EMPAGLIFLOZIN [Suspect]
     Active Substance: EMPAGLIFLOZIN
     Indication: Product used for unknown indication

REACTIONS (5)
  - Ankle fracture [Unknown]
  - Fall [Unknown]
  - Lower limb fracture [Unknown]
  - Euglycaemic diabetic ketoacidosis [Recovering/Resolving]
  - Nocturia [Unknown]
